FAERS Safety Report 7214499-9 (Version None)
Quarter: 2010Q4

REPORT INFORMATION
  Report Type: 
  Country: None (occurrence: None)
  Receive Date: 20101126
  Receipt Date: 20091104
  Transmission Date: 20110411
  Serious: Yes (Other)
  Sender: FDA-Public Use
  Company Number: WAES 0805USA00896

PATIENT
  Age: 55 Year
  Sex: Female
  Weight: 48.9885 kg

DRUGS (7)
  1. FOSAMAX [Suspect]
     Indication: OSTEOPENIA
     Dosage: 70 MG/WKY/PO ; 70 MG/WKY/PO
     Route: 048
     Dates: start: 19970701, end: 19980101
  2. FOSAMAX [Suspect]
     Indication: OSTEOPOROSIS
     Dosage: 70 MG/WKY/PO ; 70 MG/WKY/PO
     Route: 048
     Dates: start: 19970701, end: 19980101
  3. FOSAMAX [Suspect]
     Indication: OSTEOPENIA
     Dosage: 70 MG/WKY/PO ; 70 MG/WKY/PO
     Route: 048
     Dates: start: 20020101, end: 20040101
  4. FOSAMAX [Suspect]
     Indication: OSTEOPOROSIS
     Dosage: 70 MG/WKY/PO ; 70 MG/WKY/PO
     Route: 048
     Dates: start: 20020101, end: 20040101
  5. ACTONEL [Suspect]
     Indication: OSTEOPENIA
     Dosage: 35 MG/WKY/PO
     Route: 048
     Dates: start: 20040101, end: 20061102
  6. LEXAPRO [Concomitant]
  7. WELLBUTRIN [Concomitant]

REACTIONS (12)
  - ABSCESS [None]
  - BONE DISORDER [None]
  - FOOT FRACTURE [None]
  - GASTROINTESTINAL DISORDER [None]
  - IMPAIRED HEALING [None]
  - JAW DISORDER [None]
  - OSTEONECROSIS [None]
  - OVARIAN CYST [None]
  - OVERDOSE [None]
  - PAIN IN JAW [None]
  - STOMATITIS [None]
  - UTERINE LEIOMYOMA [None]
